FAERS Safety Report 10810288 (Version 1)
Quarter: 2015Q1

REPORT INFORMATION
  Report Type: Report from Study
  Country: US (occurrence: US)
  Receive Date: 20150217
  Receipt Date: 20150217
  Transmission Date: 20150721
  Serious: No
  Sender: FDA-Public Use
  Company Number: US-ABBVIE-14K-163-1229059-00

PATIENT
  Age: 59 Year
  Sex: Male

DRUGS (3)
  1. HUMIRA [Suspect]
     Active Substance: ADALIMUMAB
     Indication: RHEUMATOID ARTHRITIS
     Dosage: 40 MG IN THE 1ST AND THE 15TH OF THE MONTH
     Dates: start: 2011
  2. ARAVA [Concomitant]
     Active Substance: LEFLUNOMIDE
     Indication: RHEUMATOID ARTHRITIS
  3. ST. JOHN^S WORT [Concomitant]
     Active Substance: ST. JOHN^S WORT
     Indication: DEPRESSION

REACTIONS (3)
  - Chest discomfort [Unknown]
  - Dry skin [Unknown]
  - Eczema [Unknown]

NARRATIVE: CASE EVENT DATE: 201312
